FAERS Safety Report 14161255 (Version 2)
Quarter: 2017Q4

REPORT INFORMATION
  Report Type: Spontaneous
  Country: FR (occurrence: FR)
  Receive Date: 20171106
  Receipt Date: 20171110
  Transmission Date: 20180321
  Serious: Yes (Hospitalization, Other)
  Sender: FDA-Public Use
  Company Number: FR-GLAXOSMITHKLINE-FR2017GSK167295

PATIENT
  Age: 92 Year
  Sex: Female

DRUGS (9)
  1. AMLOR [Concomitant]
     Active Substance: AMLODIPINE BESYLATE
  2. KARDEGIC [Concomitant]
     Active Substance: ASPIRIN DL-LYSINE
  3. LANSOPRAZOLE. [Concomitant]
     Active Substance: LANSOPRAZOLE
  4. EXELON [Concomitant]
     Active Substance: RIVASTIGMINE TARTRATE
  5. SINEMET [Concomitant]
     Active Substance: CARBIDOPA\LEVODOPA
     Dosage: UNK
  6. SPECIAFOLDINE [Concomitant]
     Active Substance: FOLIC ACID
  7. SCOPODERM TTS [Suspect]
     Active Substance: SCOPOLAMINE
     Indication: SALIVARY HYPERSECRETION
     Dosage: UNK
     Route: 062
     Dates: start: 20171015, end: 20171016
  8. FUMAFER [Concomitant]
     Active Substance: FERROUS FUMARATE
  9. CALCIDOSE [Concomitant]
     Active Substance: CALCIUM CARBONATE

REACTIONS (5)
  - Aphasia [Recovered/Resolved]
  - Parkinson^s disease [Recovered/Resolved]
  - Erythema [Recovered/Resolved]
  - Product use in unapproved indication [Unknown]
  - Condition aggravated [Recovering/Resolving]

NARRATIVE: CASE EVENT DATE: 201710
